FAERS Safety Report 12904153 (Version 1)
Quarter: 2016Q4

REPORT INFORMATION
  Report Type: Report from Study
  Country: AU (occurrence: AU)
  Receive Date: 20161102
  Receipt Date: 20161102
  Transmission Date: 20170207
  Serious: Yes (Other)
  Sender: FDA-Public Use
  Company Number: AU-AMGEN-AUSSL2016148059

PATIENT
  Sex: Male

DRUGS (1)
  1. REPATHA [Suspect]
     Active Substance: EVOLOCUMAB
     Indication: TYPE IIA HYPERLIPIDAEMIA
     Dosage: 140 MG, Q2WK (FORTNIGHTLY)
     Route: 058
     Dates: start: 20160829

REACTIONS (4)
  - Pneumonia [Recovering/Resolving]
  - Bedridden [Recovering/Resolving]
  - Intentional product misuse [Unknown]
  - Influenza like illness [Recovering/Resolving]
